FAERS Safety Report 25249701 (Version 3)
Quarter: 2025Q3

REPORT INFORMATION
  Report Type: Report from Study
  Country: US (occurrence: US)
  Receive Date: 20250429
  Receipt Date: 20250905
  Transmission Date: 20251021
  Serious: No
  Sender: SUNOVION
  Company Number: US-SUMITOMO PHARMA SWITZERLAND GMBH-2025SPA002864

PATIENT
  Age: 70 Year
  Sex: Male

DRUGS (9)
  1. ORGOVYX [Suspect]
     Active Substance: RELUGOLIX
     Indication: Prostate cancer
     Dosage: 360 MG, SINGLE
     Route: 048
     Dates: start: 2023, end: 2023
  2. ORGOVYX [Suspect]
     Active Substance: RELUGOLIX
     Dosage: 120 MG, QD
     Route: 048
     Dates: start: 2023
  3. VITAMIN D3 [Concomitant]
     Active Substance: CHOLECALCIFEROL
     Route: 048
  4. GABAPENTIN [Concomitant]
     Active Substance: GABAPENTIN
     Route: 048
  5. NUBEQA [Concomitant]
     Active Substance: DAROLUTAMIDE
     Route: 048
  6. VITAMIN B3 [Concomitant]
     Active Substance: NIACIN
     Route: 048
  7. Calcium 600 + D3 plus minerals [Concomitant]
     Route: 048
  8. DENOSUMAB [Concomitant]
     Active Substance: DENOSUMAB
  9. CALCIUM [Concomitant]
     Active Substance: CALCIUM

REACTIONS (5)
  - Mood swings [Unknown]
  - Anger [Unknown]
  - Blood glucose increased [Unknown]
  - Hot flush [Unknown]
  - Product dose omission in error [Recovered/Resolved]
